FAERS Safety Report 9225529 (Version 2)
Quarter: 2013Q2

REPORT INFORMATION
  Report Type: Spontaneous
  Country: DE (occurrence: DE)
  Receive Date: 20130411
  Receipt Date: 20130507
  Transmission Date: 20140414
  Serious: Yes (Other)
  Sender: FDA-Public Use
  Company Number: DE-ROCHE-1209306

PATIENT
  Age: 61 Year
  Sex: Male

DRUGS (2)
  1. ACTILYSE [Suspect]
     Indication: ISCHAEMIC STROKE
     Route: 065
  2. DALTEPARIN [Suspect]
     Indication: ISCHAEMIC STROKE
     Route: 058

REACTIONS (9)
  - Haemorrhagic transformation stroke [Unknown]
  - Hypercoagulation [Unknown]
  - Dyspnoea [Unknown]
  - Tachypnoea [Unknown]
  - Tachycardia [Unknown]
  - Blood pressure increased [Unknown]
  - Pleural effusion [Unknown]
  - Intracardiac thrombus [Recovered/Resolved]
  - Ejection fraction decreased [Not Recovered/Not Resolved]
